FAERS Safety Report 25639101 (Version 1)
Quarter: 2025Q3

REPORT INFORMATION
  Report Type: Spontaneous
  Country: US (occurrence: US)
  Receive Date: 20250804
  Receipt Date: 20250804
  Transmission Date: 20251021
  Serious: Yes (Other)
  Sender: SHILPA MEDICARE
  Company Number: US-KOANAAP-SML-US-2025-00369

PATIENT

DRUGS (2)
  1. DOCETAXEL [Suspect]
     Active Substance: DOCETAXEL
     Indication: Follicular dendritic cell sarcoma
  2. GEMCITABINE [Suspect]
     Active Substance: GEMCITABINE
     Indication: Follicular dendritic cell sarcoma

REACTIONS (2)
  - Disease progression [Unknown]
  - Drug ineffective [Unknown]
